FAERS Safety Report 9125872 (Version 1)
Quarter: 2013Q1

REPORT INFORMATION
  Report Type: Report from Study
  Country: CN (occurrence: CN)
  Receive Date: 20130117
  Receipt Date: 20130117
  Transmission Date: 20140127
  Serious: Yes (Other)
  Sender: FDA-Public Use
  Company Number: CN-ROCHE-1180478

PATIENT
  Age: 60 Year
  Sex: Female

DRUGS (3)
  1. PEGASYS [Suspect]
     Indication: HEPATITIS C
     Route: 058
     Dates: start: 20120913, end: 20121227
  2. PEGASYS [Suspect]
     Route: 058
     Dates: start: 20130103
  3. RIBAVIRIN [Concomitant]
     Indication: HEPATITIS C
     Route: 048
     Dates: start: 20120913

REACTIONS (2)
  - White blood cell count decreased [Unknown]
  - Thyroid function test abnormal [Unknown]
